FAERS Safety Report 7603294-4 (Version None)
Quarter: 2011Q3

REPORT INFORMATION
  Report Type: 
  Country: None (occurrence: None)
  Receive Date: 20110712
  Receipt Date: 20110629
  Transmission Date: 20111222
  Serious: Yes (Hospitalization)
  Sender: FDA-Public Use
  Company Number: PHFR2011GB02192

PATIENT
  Sex: Male

DRUGS (2)
  1. CLOZAPINE [Suspect]
     Indication: SCHIZOPHRENIA
     Route: 048
     Dates: start: 20070223
  2. CLOZAPINE [Suspect]
     Dosage: 300 MG/DAY
     Route: 048

REACTIONS (12)
  - CLOSTRIDIAL INFECTION [None]
  - PLATELET COUNT DECREASED [None]
  - INFLAMMATORY BOWEL DISEASE [None]
  - DYSPHAGIA [None]
  - VOMITING [None]
  - SCHIZOPHRENIA [None]
  - BLADDER MASS [None]
  - DIARRHOEA [None]
  - NEUTROPHIL COUNT INCREASED [None]
  - WHITE BLOOD CELL COUNT INCREASED [None]
  - GASTROINTESTINAL OEDEMA [None]
  - DEHYDRATION [None]
